FAERS Safety Report 11211616 (Version 1)
Quarter: 2015Q2

REPORT INFORMATION
  Report Type: Spontaneous
  Country: US (occurrence: US)
  Receive Date: 20150623
  Receipt Date: 20150623
  Transmission Date: 20150821
  Serious: No
  Sender: FDA-Public Use
  Company Number: US-JNJFOC-20150613424

PATIENT
  Age: 70 Year
  Sex: Male
  Weight: 72.58 kg

DRUGS (1)
  1. FENTANYL TRANSDERMAL SYSTEM [Suspect]
     Active Substance: FENTANYL
     Indication: PAIN
     Route: 062
     Dates: start: 2015

REACTIONS (11)
  - Overdose [Recovered/Resolved]
  - Drug ineffective [Not Recovered/Not Resolved]
  - Malaise [Not Recovered/Not Resolved]
  - Pain [None]
  - Feeling abnormal [Recovered/Resolved]
  - Nausea [Recovered/Resolved]
  - Neck pain [Not Recovered/Not Resolved]
  - Breakthrough pain [Unknown]
  - Influenza like illness [Recovered/Resolved]
  - Incorrect drug administration duration [Unknown]
  - Drug effect variable [None]

NARRATIVE: CASE EVENT DATE: 2015
